FAERS Safety Report 13168795 (Version 1)
Quarter: 2017Q1

REPORT INFORMATION
  Report Type: Report from Study
  Country: None (occurrence: BR)
  Receive Date: 20170131
  Receipt Date: 20170131
  Transmission Date: 20170428
  Serious: Yes (Other)
  Sender: FDA-Public Use
  Company Number: BR-ABBVIE-17P-020-1856452-00

PATIENT
  Age: 29 Year
  Sex: Male
  Weight: 45 kg

DRUGS (3)
  1. HUMIRA [Suspect]
     Active Substance: ADALIMUMAB
     Indication: CROHN^S DISEASE
     Route: 058
     Dates: start: 20130601
  2. PHENOBARBITAL. [Concomitant]
     Active Substance: PHENOBARBITAL
     Indication: CONVULSION PROPHYLAXIS
     Route: 048
  3. CARBAMAZEPINE. [Concomitant]
     Active Substance: CARBAMAZEPINE
     Indication: CONVULSION PROPHYLAXIS
     Route: 048
     Dates: start: 2012

REACTIONS (4)
  - Weight decreased [Recovering/Resolving]
  - Seizure [Recovered/Resolved]
  - Muscle atrophy [Recovering/Resolving]
  - Haemoglobin decreased [Unknown]

NARRATIVE: CASE EVENT DATE: 201612
